FAERS Safety Report 8443206-7 (Version None)
Quarter: 2012Q2

REPORT INFORMATION
  Report Type: 
  Country: None (occurrence: None)
  Receive Date: 20120617
  Receipt Date: 20120606
  Transmission Date: 20120825
  Serious: Yes (Other)
  Sender: FDA-Public Use
  Company Number: JP-VERTEX PHARMACEUTICALS INC.-AE-2012-006311

PATIENT
  Age: 55 Year
  Sex: Male

DRUGS (13)
  1. PEG-INTRON [Concomitant]
     Route: 051
     Dates: start: 20120330, end: 20120405
  2. METHADERM [Concomitant]
     Route: 061
     Dates: start: 20120420
  3. PEG-INTRON [Concomitant]
     Route: 051
     Dates: start: 20120427
  4. PREDNISOLONE [Concomitant]
     Indication: ADVERSE EVENT
     Route: 048
     Dates: start: 20120313, end: 20120315
  5. TELAVIC (TELAPREVIR) [Suspect]
     Indication: HEPATITIS C
     Route: 048
     Dates: start: 20120309, end: 20120601
  6. REBETOL [Concomitant]
     Route: 048
     Dates: start: 20120420
  7. REBETOL [Concomitant]
     Indication: HEPATITIS C
     Route: 048
     Dates: start: 20120309, end: 20120405
  8. REBETOL [Concomitant]
     Route: 048
     Dates: start: 20120406, end: 20120419
  9. HIRUDOID [Concomitant]
     Route: 061
     Dates: start: 20120420
  10. XYZAL [Concomitant]
     Indication: ADVERSE EVENT
     Route: 048
     Dates: start: 20120323, end: 20120419
  11. OLOPATADINE HCL [Concomitant]
     Indication: ADVERSE EVENT
     Route: 048
     Dates: start: 20120323
  12. PEG-INTRON [Concomitant]
     Indication: HEPATITIS C
     Route: 051
     Dates: start: 20120309, end: 20120329
  13. PEG-INTRON [Concomitant]
     Route: 051
     Dates: start: 20120406

REACTIONS (1)
  - DELIRIUM [None]
